FAERS Safety Report 13312774 (Version 1)
Quarter: 2017Q1

REPORT INFORMATION
  Report Type: Spontaneous
  Country: CH (occurrence: CH)
  Receive Date: 20170309
  Receipt Date: 20170309
  Transmission Date: 20170428
  Serious: Yes (Hospitalization, Other)
  Sender: FDA-Public Use
  Company Number: CH-GLAXOSMITHKLINE-CH2017032210

PATIENT
  Age: 85 Year
  Sex: Male

DRUGS (17)
  1. DUROGESIC [Concomitant]
     Active Substance: FENTANYL
     Indication: BACK PAIN
     Dosage: 12 ?G, PER HOUR
     Route: 062
  2. MACROGOL [Concomitant]
     Active Substance: POLYETHYLENE GLYCOLS
     Indication: PRODUCT USED FOR UNKNOWN INDICATION
     Dosage: UNK, QD
     Route: 065
  3. PARAGOL N [Concomitant]
     Indication: PRODUCT USED FOR UNKNOWN INDICATION
     Dosage: UNK UNK, QD
     Route: 065
  4. PANTOZOL [Concomitant]
     Active Substance: PANTOPRAZOLE SODIUM
     Indication: PRODUCT USED FOR UNKNOWN INDICATION
     Dosage: 40MG/DAY
     Route: 065
  5. REQUIP [Suspect]
     Active Substance: ROPINIROLE HYDROCHLORIDE
     Indication: PARKINSON^S DISEASE
     Dosage: 2 MG, QD
     Route: 065
  6. MADOPAR [Suspect]
     Active Substance: BENSERAZIDE HYDROCHLORIDE\LEVODOPA
     Dosage: 62.5MG/DAY
     Route: 065
     Dates: start: 20161126, end: 20161128
  7. MADOPAR [Suspect]
     Active Substance: BENSERAZIDE HYDROCHLORIDE\LEVODOPA
     Indication: PARKINSON^S DISEASE
     Dosage: 1062.5MG/DAY
     Route: 065
     Dates: start: 20161125, end: 20161125
  8. CLOPIN (CLOZAPINE) [Suspect]
     Active Substance: CLOZAPINE
     Indication: PRODUCT USED FOR UNKNOWN INDICATION
     Dosage: 12.5 MG/DAY
     Route: 065
     Dates: start: 20161202, end: 20161204
  9. STALEVO [Suspect]
     Active Substance: CARBIDOPA\ENTACAPONE\LEVODOPA
     Indication: PARKINSON^S DISEASE
     Dosage: 1 DF, UNK
     Route: 065
     Dates: start: 20161126
  10. MARCOUMAR [Concomitant]
     Active Substance: PHENPROCOUMON
     Indication: PRODUCT USED FOR UNKNOWN INDICATION
     Dosage: 0.025 MG, QD
     Route: 065
  11. DUODART [Concomitant]
     Active Substance: DUTASTERIDE\TAMSULOSIN
     Indication: PRODUCT USED FOR UNKNOWN INDICATION
     Dosage: 0.5MG DUTASTERID/ 0.4G TAMSULOSIN /TAG
     Route: 065
  12. CALCIUM CARBONATE + COLECALCIFEROL [Concomitant]
     Active Substance: CALCIUM CARBONATE\CHOLECALCIFEROL
     Indication: PRODUCT USED FOR UNKNOWN INDICATION
     Dosage: CALCIUM CARBONATE/CHOLECALCIFEROL) 800 IE/DAY 500 MG
     Route: 065
  13. MADOPAR [Suspect]
     Active Substance: BENSERAZIDE HYDROCHLORIDE\LEVODOPA
     Dosage: 125 MG, UNK
     Route: 065
     Dates: start: 20161129
  14. DAFALGAN [Concomitant]
     Active Substance: ACETAMINOPHEN
     Indication: PRODUCT USED FOR UNKNOWN INDICATION
     Dosage: UNK UNK, QD
     Route: 065
     Dates: start: 20161202
  15. CLOPIN (CLOZAPINE) [Suspect]
     Active Substance: CLOZAPINE
     Dosage: 25 MG/DAY
     Route: 065
     Dates: start: 20161205, end: 20161205
  16. REMERON [Suspect]
     Active Substance: MIRTAZAPINE
     Indication: PRODUCT USED FOR UNKNOWN INDICATION
     Dosage: 30 MG, QD
     Route: 065
  17. FRAGMIN [Concomitant]
     Active Substance: DALTEPARIN SODIUM
     Indication: PRODUCT USED FOR UNKNOWN INDICATION
     Dosage: UNK
     Route: 065
     Dates: start: 20161202

REACTIONS (2)
  - Somnolence [Recovered/Resolved]
  - Coma scale abnormal [Recovered/Resolved]

NARRATIVE: CASE EVENT DATE: 20161206
